FAERS Safety Report 16701509 (Version 2)
Quarter: 2019Q4

REPORT INFORMATION
  Report Type: Report from Study
  Country: US (occurrence: US)
  Receive Date: 20190814
  Receipt Date: 20191015
  Transmission Date: 20200122
  Serious: Yes (Other)
  Sender: FDA-Public Use
  Company Number: US-JNJFOC-20190717223

PATIENT
  Age: 71 Year
  Sex: Male

DRUGS (1)
  1. IMBRUVICA [Suspect]
     Active Substance: IBRUTINIB
     Indication: CHRONIC LYMPHOCYTIC LEUKAEMIA
     Dosage: 140 MG, QD
     Route: 048
     Dates: start: 20190104

REACTIONS (12)
  - Fatigue [Unknown]
  - Feeling abnormal [Unknown]
  - Taste disorder [Not Recovered/Not Resolved]
  - Diarrhoea [Not Recovered/Not Resolved]
  - Squamous cell carcinoma of skin [Unknown]
  - Incorrect dose administered [Unknown]
  - White blood cell count increased [Recovering/Resolving]
  - Head discomfort [Unknown]
  - Blood urine present [Unknown]
  - Peripheral swelling [Recovering/Resolving]
  - Hypertension [Not Recovered/Not Resolved]
  - Off label use [Unknown]

NARRATIVE: CASE EVENT DATE: 20190104
